FAERS Safety Report 4435252-5 (Version None)
Quarter: 2004Q3

REPORT INFORMATION
  Report Type: 
  Country: None (occurrence: None)
  Receive Date: 20040826
  Receipt Date: 20040726
  Transmission Date: 20050211
  Serious: Yes (Disabling)
  Sender: FDA-Public Use
  Company Number: 2004-DE-03273DE

PATIENT
  Sex: Female

DRUGS (2)
  1. AGGRENOX [Suspect]
     Indication: TRANSIENT ISCHAEMIC ATTACK
     Dosage: PO
     Route: 048
  2. AMITRIPTYLIN [Concomitant]

REACTIONS (3)
  - DEPERSONALISATION [None]
  - DIZZINESS [None]
  - SOMNOLENCE [None]
